FAERS Safety Report 25265730 (Version 1)
Quarter: 2025Q2

REPORT INFORMATION
  Report Type: Spontaneous
  Country: US (occurrence: US)
  Receive Date: 20250503
  Receipt Date: 20250503
  Transmission Date: 20250716
  Serious: No
  Sender: AUROBINDO
  Company Number: US-AUROBINDO-AUR-APL-2025-016435

PATIENT
  Age: 58 Year
  Sex: Female

DRUGS (1)
  1. DEXTROMETHORPHAN HYDROBROMIDE\GUAIFENESIN [Suspect]
     Active Substance: DEXTROMETHORPHAN HYDROBROMIDE\GUAIFENESIN
     Indication: Nasopharyngitis
     Route: 065

REACTIONS (6)
  - Vomiting [Unknown]
  - Diarrhoea [Unknown]
  - Blood pressure increased [Unknown]
  - Malaise [Unknown]
  - Muscle spasms [Unknown]
  - Panic attack [Unknown]
